FAERS Safety Report 9655986 (Version 1)
Quarter: 2013Q4

REPORT INFORMATION
  Report Type: Spontaneous
  Country: US (occurrence: None)
  Receive Date: 20131029
  Receipt Date: 20131029
  Transmission Date: 20140711
  Serious: Yes (Disabling)
  Sender: FDA-Public Use
  Company Number: None

PATIENT
  Age: 12 Year
  Sex: Male
  Weight: 31.75 kg

DRUGS (1)
  1. GABAPENTIN 300 MG [Suspect]
     Indication: PAIN
     Dosage: 1 PILL
     Route: 048
     Dates: start: 20130508, end: 20131028

REACTIONS (2)
  - Diplopia [None]
  - Headache [None]
